FAERS Safety Report 19089934 (Version 2)
Quarter: 2021Q2

REPORT INFORMATION
  Report Type: Spontaneous
  Country: US (occurrence: US)
  Receive Date: 20210404
  Receipt Date: 20210408
  Transmission Date: 20210717
  Serious: No
  Sender: FDA-Public Use
  Company Number: US-SA-2021SA108130

PATIENT
  Age: 53 Year
  Sex: Female

DRUGS (1)
  1. DUPIXENT [Suspect]
     Active Substance: DUPILUMAB
     Dosage: 300 MG
     Route: 048
     Dates: start: 20210223

REACTIONS (2)
  - Incorrect route of product administration [Unknown]
  - Injection site pain [Unknown]

NARRATIVE: CASE EVENT DATE: 20210223
